FAERS Safety Report 6686941-3 (Version None)
Quarter: 2010Q2

REPORT INFORMATION
  Report Type: 
  Country: None (occurrence: None)
  Receive Date: 20100414
  Receipt Date: 20100331
  Transmission Date: 20101027
  Serious: Yes (Hospitalization)
  Sender: FDA-Public Use
  Company Number: 009647

PATIENT
  Sex: Female

DRUGS (1)
  1. LEVETRACETAM [Suspect]
     Indication: PARTIAL SEIZURES
     Dosage: ORAL
     Route: 048

REACTIONS (1)
  - PNEUMONIA MYCOPLASMAL [None]
